FAERS Safety Report 4430249-3 (Version None)
Quarter: 2004Q3

REPORT INFORMATION
  Report Type: 
  Country: None (occurrence: None)
  Receive Date: 20040820
  Receipt Date: 20040708
  Transmission Date: 20050211
  Serious: Yes (Hospitalization, Other)
  Sender: FDA-Public Use
  Company Number: GB-GLAXOSMITHKLINE-B0338405A

PATIENT
  Age: 43 Year
  Sex: Male

DRUGS (7)
  1. ZYBAN [Suspect]
     Route: 048
     Dates: start: 20040626, end: 20040707
  2. MIXTARD HUMAN 70/30 [Suspect]
     Indication: DIABETES MELLITUS
     Dosage: 40UNIT TWICE PER DAY
     Route: 058
     Dates: start: 19900101
  3. PRAVASTATIN [Concomitant]
     Indication: DRUG USE FOR UNKNOWN INDICATION
     Route: 048
  4. ATENOLOL [Concomitant]
     Route: 048
  5. ASPIRIN [Concomitant]
     Route: 048
  6. RAMIPRIL [Concomitant]
     Route: 048
  7. NIQUITIN CQ [Concomitant]
     Dosage: 21MG PER DAY
     Route: 062
     Dates: start: 20040703

REACTIONS (5)
  - ERYTHEMA [None]
  - ORBITAL OEDEMA [None]
  - RASH PAPULAR [None]
  - SKIN DEGENERATIVE DISORDER [None]
  - URTICARIA [None]
